FAERS Safety Report 13777420 (Version 1)
Quarter: 2017Q3

REPORT INFORMATION
  Report Type: Other
  Country: RU (occurrence: RU)
  Receive Date: 20170721
  Receipt Date: 20170721
  Transmission Date: 20171127
  Serious: Yes (Hospitalization)
  Sender: FDA-Public Use
  Company Number: RU-CELLTRION INC.-2017RU009498

PATIENT

DRUGS (1)
  1. FLAMMEGIS [Suspect]
     Active Substance: INFLIXIMAB
     Indication: PRODUCT USED FOR UNKNOWN INDICATION
     Route: 042

REACTIONS (1)
  - Cystitis haemorrhagic [Recovering/Resolving]
